FAERS Safety Report 25851138 (Version 1)
Quarter: 2025Q3

REPORT INFORMATION
  Report Type: Spontaneous
  Country: ZA (occurrence: ZA)
  Receive Date: 20250926
  Receipt Date: 20250926
  Transmission Date: 20251021
  Serious: Yes (Other)
  Sender: ROCHE
  Company Number: ZA-ROCHE-10000393356

PATIENT
  Age: 69 Year
  Sex: Female

DRUGS (2)
  1. BONVIVA [Suspect]
     Active Substance: IBANDRONATE SODIUM
     Indication: Product used for unknown indication
     Route: 065
     Dates: start: 20240816
  2. BONVIVA [Suspect]
     Active Substance: IBANDRONATE SODIUM
     Route: 065
     Dates: start: 202411

REACTIONS (1)
  - Pericarditis [Unknown]
